FAERS Safety Report 6489946-0 (Version None)
Quarter: 2009Q4

REPORT INFORMATION
  Report Type: 
  Country: None (occurrence: None)
  Receive Date: 20091211
  Receipt Date: 20091201
  Transmission Date: 20100525
  Serious: Yes (Other)
  Sender: FDA-Public Use
  Company Number: DE-JNJFOC-20091200676

PATIENT
  Age: 52 Year
  Sex: Male
  Weight: 99 kg

DRUGS (3)
  1. REMICADE [Suspect]
     Dosage: 3RD AND FINAL INFUSION
     Route: 042
     Dates: start: 20090702, end: 20091006
  2. REMICADE [Suspect]
     Indication: PSORIATIC ARTHROPATHY
     Route: 042
     Dates: start: 20090702, end: 20091006
  3. INSULIN [Concomitant]
     Indication: DIABETES MELLITUS

REACTIONS (3)
  - BLOOD GLUCOSE INCREASED [None]
  - CARDIOVASCULAR DISORDER [None]
  - INFUSION RELATED REACTION [None]
